FAERS Safety Report 16359949 (Version 2)
Quarter: 2020Q2

REPORT INFORMATION
  Report Type: Spontaneous
  Country: JP (occurrence: JP)
  Receive Date: 20190528
  Receipt Date: 20200515
  Transmission Date: 20200713
  Serious: Yes (Other)
  Sender: FDA-Public Use
  Company Number: JP-SUN PHARMACEUTICAL INDUSTRIES LTD-2019R1-209040

PATIENT
  Age: 18 Year
  Sex: Female

DRUGS (9)
  1. BETAMETHASONE. [Suspect]
     Active Substance: BETAMETHASONE
     Indication: SERPIGINOUS CHOROIDITIS
     Dosage: 7 MG
     Route: 048
  2. METHYLPREDNISOLONE. [Suspect]
     Active Substance: METHYLPREDNISOLONE
     Indication: SERPIGINOUS CHOROIDITIS
     Dosage: 1 GRAM, DAILY
     Route: 065
  3. PREDNISONE. [Suspect]
     Active Substance: PREDNISONE
     Indication: SERPIGINOUS CHOROIDITIS
     Dosage: 40 MILLIGRAM, DAILY
     Route: 048
  4. ADALIMUMAB [Suspect]
     Active Substance: ADALIMUMAB
     Indication: SERPIGINOUS CHOROIDITIS
     Dosage: 80MG
     Route: 058
  5. CICLOSPORIN [Suspect]
     Active Substance: CYCLOSPORINE
     Indication: SERPIGINOUS CHOROIDITIS
     Dosage: 300MG
     Route: 048
  6. ADALIMUMAB [Suspect]
     Active Substance: ADALIMUMAB
     Dosage: 40MG
     Route: 058
  7. BETAMETHASONE. [Suspect]
     Active Substance: BETAMETHASONE
     Dosage: 3MG
     Route: 048
  8. PREDNISONE. [Suspect]
     Active Substance: PREDNISONE
     Dosage: 60 MILLIGRAM, DAILY
     Route: 048
  9. TRIAMCINOLONE [Suspect]
     Active Substance: TRIAMCINOLONE
     Indication: SERPIGINOUS CHOROIDITIS
     Dosage: 20MG

REACTIONS (3)
  - Disease progression [Unknown]
  - Visual acuity reduced [Unknown]
  - Therapy non-responder [Unknown]
